FAERS Safety Report 23433681 (Version 1)
Quarter: 2024Q1

REPORT INFORMATION
  Report Type: Spontaneous
  Country: HR (occurrence: HR)
  Receive Date: 20240123
  Receipt Date: 20240123
  Transmission Date: 20240409
  Serious: Yes (Other)
  Sender: FDA-Public Use
  Company Number: HR-TEVA-VS-3148387

PATIENT
  Age: 73 Year

DRUGS (1)
  1. SORAFENIB [Suspect]
     Active Substance: SORAFENIB
     Indication: Hepatocellular carcinoma
     Dosage: HE STARTED RECEIVING ORAL SORAFENIB AT AN INITIAL DOSAGE OF 800MG DAILY, DIVIDED INTO TWO EQUAL D...
     Route: 048
     Dates: end: 20201015

REACTIONS (3)
  - Rash maculo-papular [Recovering/Resolving]
  - Weight decreased [Recovering/Resolving]
  - Diarrhoea [Recovering/Resolving]
